FAERS Safety Report 25611413 (Version 1)
Quarter: 2025Q3

REPORT INFORMATION
  Report Type: Report from Study
  Country: TH (occurrence: TH)
  Receive Date: 20250728
  Receipt Date: 20250728
  Transmission Date: 20251020
  Serious: Yes (Hospitalization)
  Sender: ALEXION PHARMACEUTICALS
  Company Number: TH-AstraZeneca-CH-00918986A

PATIENT
  Age: 61 Year
  Sex: Male

DRUGS (1)
  1. OSIMERTINIB [Suspect]
     Active Substance: OSIMERTINIB
     Indication: Non-small cell lung cancer
     Route: 065
     Dates: start: 20210908

REACTIONS (3)
  - Pancreatitis [Not Recovered/Not Resolved]
  - Small intestinal obstruction [Not Recovered/Not Resolved]
  - Fluid intake reduced [Unknown]

NARRATIVE: CASE EVENT DATE: 20250701
